FAERS Safety Report 24771381 (Version 1)
Quarter: 2024Q4

REPORT INFORMATION
  Report Type: Spontaneous
  Country: SI (occurrence: SI)
  Receive Date: 20241224
  Receipt Date: 20241224
  Transmission Date: 20250115
  Serious: Yes (Other)
  Sender: GLAXOSMITHKLINE
  Company Number: None

PATIENT

DRUGS (4)
  1. WELLBUTRIN XL [Suspect]
     Active Substance: BUPROPION HYDROCHLORIDE
     Indication: Drug abuse
     Dosage: 300 MG, QD; 1X/DAY 7 TABLETS (2100 MG), INTRANASALLY
     Route: 045
     Dates: start: 20241201, end: 20241201
  2. QUETIAPINE FUMARATE [Concomitant]
     Active Substance: QUETIAPINE FUMARATE
     Indication: Restlessness
     Dosage: 25 MG, THE EXACT DOSAGE REGIMEN WAS UNKNOWN
     Route: 048
  3. LACIDIPINE [Concomitant]
     Active Substance: LACIDIPINE
     Indication: Hypertension
     Dosage: 4 MG;THE EXACT DOSAGE REGIMEN WAS UNKNOWN
     Route: 048
  4. LYRICA [Concomitant]
     Active Substance: PREGABALIN
     Indication: Restlessness
     Dosage: 150 MG; THE EXACT DOSAGE REGIMEN WAS UNKNOWN, IT SHOULD BE TAKEN OCCASIONALLY
     Route: 048

REACTIONS (5)
  - Hyperhidrosis [Recovering/Resolving]
  - Tremor [Recovering/Resolving]
  - Epilepsy [Recovering/Resolving]
  - Drug abuse [Recovering/Resolving]
  - Incorrect route of product administration [Recovering/Resolving]

NARRATIVE: CASE EVENT DATE: 20241201
